FAERS Safety Report 20059598 (Version 2)
Quarter: 2022Q3

REPORT INFORMATION
  Report Type: Spontaneous
  Country: US (occurrence: US)
  Receive Date: 20211111
  Receipt Date: 20220708
  Transmission Date: 20221026
  Serious: Yes (Other)
  Sender: FDA-Public Use
  Company Number: US-AMRYT PHARMACEUTICALS DAC-AEGR005298

PATIENT
  Sex: Male
  Weight: 36.281 kg

DRUGS (7)
  1. MYALEPT [Suspect]
     Active Substance: METRELEPTIN
     Indication: Lipodystrophy acquired
     Dosage: 3 MILLIGRAM (0.6ML), QD
     Route: 058
  2. MYALEPT [Suspect]
     Active Substance: METRELEPTIN
     Dosage: 0.3 MILLIGRAM, QD
     Route: 058
  3. MYALEPT [Suspect]
     Active Substance: METRELEPTIN
     Dosage: 3 MILLIGRAM, QD
     Route: 058
  4. BASAGLAR [Concomitant]
     Active Substance: INSULIN GLARGINE
     Indication: Product used for unknown indication
  5. NOVOLOG [Concomitant]
     Active Substance: INSULIN ASPART
     Indication: Product used for unknown indication
  6. LEVOTHYROXINE SODIUM [Concomitant]
     Active Substance: LEVOTHYROXINE SODIUM
     Indication: Autoimmune thyroiditis
     Dosage: 175 MICROGRAM, QD
     Route: 048
  7. INSULIN NOS [Concomitant]
     Active Substance: INSULIN NOS
     Indication: Type 1 diabetes mellitus
     Dosage: VARIES

REACTIONS (9)
  - Suicidal ideation [Recovering/Resolving]
  - Weight gain poor [Not Recovered/Not Resolved]
  - Mood swings [Unknown]
  - Gastric dilatation [Not Recovered/Not Resolved]
  - Thyroid hormones increased [Unknown]
  - Increased insulin requirement [Unknown]
  - Blood triglycerides decreased [Unknown]
  - Aortic disorder [Recovered/Resolved]
  - Glycosylated haemoglobin decreased [Unknown]
